FAERS Safety Report 7607583-9 (Version None)
Quarter: 2011Q3

REPORT INFORMATION
  Report Type: 
  Country: None (occurrence: None)
  Receive Date: 20110713
  Receipt Date: 20110701
  Transmission Date: 20111222
  Serious: Yes (Other)
  Sender: FDA-Public Use
  Company Number: PHHY2011US46064

PATIENT
  Sex: Female

DRUGS (2)
  1. EXJADE [Suspect]
     Dosage: 500 MG, BID
     Route: 048
  2. PREDNISONE [Concomitant]

REACTIONS (8)
  - DIARRHOEA [None]
  - HEADACHE [None]
  - NAUSEA [None]
  - DIABETES MELLITUS [None]
  - VISION BLURRED [None]
  - DRUG DOSE OMISSION [None]
  - HAEMOGLOBIN DECREASED [None]
  - RETCHING [None]
